FAERS Safety Report 9249247 (Version 1)
Quarter: 2013Q2

REPORT INFORMATION
  Report Type: Spontaneous
  Country: US (occurrence: US)
  Receive Date: 20130422
  Receipt Date: 20130422
  Transmission Date: 20140414
  Serious: Yes (Other)
  Sender: FDA-Public Use
  Company Number: US-RB-053149-13

PATIENT
  Age: 18 Year
  Sex: Male

DRUGS (1)
  1. MUCINEX DM MAXIMUM STRENGTH [Suspect]
     Indication: INTENTIONAL DRUG MISUSE
     Dosage: TOOK 7 TABLETS
     Route: 048
     Dates: start: 20130410

REACTIONS (3)
  - Intentional drug misuse [Not Recovered/Not Resolved]
  - Gait disturbance [Not Recovered/Not Resolved]
  - Urticaria [Not Recovered/Not Resolved]
